FAERS Safety Report 10571403 (Version 6)
Quarter: 2017Q4

REPORT INFORMATION
  Report Type: Spontaneous
  Country: US (occurrence: US)
  Receive Date: 20141107
  Receipt Date: 20171122
  Transmission Date: 20180320
  Serious: Yes (Hospitalization, Disabling, Other)
  Sender: FDA-Public Use
  Company Number: US-MERCK-1411USA000616

PATIENT
  Sex: Female

DRUGS (2)
  1. FOSAMAX [Suspect]
     Active Substance: ALENDRONATE SODIUM
     Indication: OSTEOPOROSIS
     Dosage: 70 MG, QW
     Route: 048
     Dates: start: 200801, end: 201012
  2. LEVOTHROID [Concomitant]
     Active Substance: LEVOTHYROXINE SODIUM
     Indication: HYPOTHYROIDISM
     Dosage: UNK, UNKNOWN
     Route: 065
     Dates: start: 1993

REACTIONS (6)
  - Osteoporosis [Unknown]
  - Femur fracture [Recovered/Resolved]
  - Polymyalgia rheumatica [Unknown]
  - Femur fracture [Not Recovered/Not Resolved]
  - Fracture nonunion [Unknown]
  - Fracture delayed union [Recovered/Resolved]

NARRATIVE: CASE EVENT DATE: 201005
